FAERS Safety Report 23387585 (Version 1)
Quarter: 2024Q1

REPORT INFORMATION
  Report Type: Spontaneous
  Country: US (occurrence: None)
  Receive Date: 20240109
  Receipt Date: 20240109
  Transmission Date: 20240409
  Serious: No
  Sender: FDA-Public Use
  Company Number: None

PATIENT
  Age: 92 Year
  Sex: Female
  Weight: 44.91 kg

DRUGS (1)
  1. OTEZLA [Suspect]
     Active Substance: APREMILAST
     Indication: Psoriasis
     Dosage: OTHER QUANTITY : 1 DOSEAGE;?FREQUENCY : AS DIRECTED;?
     Dates: start: 202401

REACTIONS (6)
  - Back pain [None]
  - Depression [None]
  - Diarrhoea [None]
  - Restlessness [None]
  - Pain [None]
  - Psoriasis [None]
